FAERS Safety Report 7087851-2 (Version None)
Quarter: 2010Q4

REPORT INFORMATION
  Report Type: 
  Country: None (occurrence: None)
  Receive Date: 20101108
  Receipt Date: 20101027
  Transmission Date: 20110411
  Serious: Yes (Hospitalization)
  Sender: FDA-Public Use
  Company Number: PL-JNJFOC-20101007425

PATIENT
  Age: 25 Year
  Sex: Female

DRUGS (1)
  1. RISPOLEPT CONSTA [Suspect]
     Indication: SCHIZOPHRENIA
     Route: 030

REACTIONS (4)
  - ABSCESS [None]
  - ABSCESS LIMB [None]
  - PHARYNGEAL ABSCESS [None]
  - SUBCUTANEOUS ABSCESS [None]
